FAERS Safety Report 16042419 (Version 1)
Quarter: 2019Q1

REPORT INFORMATION
  Report Type: Spontaneous
  Country: US (occurrence: US)
  Receive Date: 20190306
  Receipt Date: 20190306
  Transmission Date: 20190418
  Serious: No
  Sender: FDA-Public Use
  Company Number: US-AKORN PHARMACEUTICALS-2018AKN00958

PATIENT
  Age: 25 Year
  Sex: Female
  Weight: 72.56 kg

DRUGS (4)
  1. MYORISAN [Suspect]
     Active Substance: ISOTRETINOIN
     Indication: ACNE
     Dosage: 30 MG, 2X/DAY
     Dates: start: 20171117
  2. MULTIVITAMINS [Concomitant]
     Active Substance: VITAMINS
  3. UNSPECIFIED PROBIOTIC [Concomitant]
  4. MYORISAN [Suspect]
     Active Substance: ISOTRETINOIN
     Dosage: UNK MG, UNK
     Dates: end: 2018

REACTIONS (8)
  - Dry skin [Recovering/Resolving]
  - Lip dry [Recovering/Resolving]
  - Treatment noncompliance [Recovered/Resolved]
  - Influenza [Recovered/Resolved]
  - Skin fissures [Recovering/Resolving]
  - Headache [Recovered/Resolved]
  - Dry mouth [Recovering/Resolving]
  - Respiratory symptom [Recovered/Resolved]

NARRATIVE: CASE EVENT DATE: 201711
